FAERS Safety Report 12397303 (Version 2)
Quarter: 2016Q2

REPORT INFORMATION
  Report Type: Spontaneous
  Country: TR (occurrence: TR)
  Receive Date: 20160524
  Receipt Date: 20160603
  Transmission Date: 20160815
  Serious: Yes (Congenital Anomaly, Other)
  Sender: FDA-Public Use
  Company Number: TR-SUN PHARMACEUTICAL INDUSTRIES LTD-2016RR-117135

PATIENT
  Sex: Female

DRUGS (1)
  1. VALPROIC ACID. [Suspect]
     Active Substance: VALPROIC ACID
     Indication: EPILEPSY
     Dosage: 500 MG, DAILY
     Route: 064

REACTIONS (9)
  - Arnold-Chiari malformation [Unknown]
  - Congenital musculoskeletal anomaly [Recovering/Resolving]
  - Developmental hip dysplasia [Unknown]
  - Congenital hypothyroidism [Unknown]
  - Meningomyelocele [Unknown]
  - Meningomyelocele [Recovering/Resolving]
  - Foetal exposure during pregnancy [Unknown]
  - Neonatal respiratory distress syndrome [Recovering/Resolving]
  - Patent ductus arteriosus [Unknown]
